FAERS Safety Report 18845343 (Version 2)
Quarter: 2021Q4

REPORT INFORMATION
  Report Type: Other
  Country: CZ (occurrence: CZ)
  Receive Date: 20210204
  Receipt Date: 20211217
  Transmission Date: 20220303
  Serious: Yes (Other)
  Sender: FDA-Public Use
  Company Number: CZ-MYLANLABS-2020M1101081

PATIENT
  Age: 61 Year
  Sex: Female

DRUGS (11)
  1. AVASTIN [Suspect]
     Active Substance: BEVACIZUMAB
     Indication: Ovarian cancer
     Dosage: UNK
     Route: 065
     Dates: start: 201604
  2. AVASTIN [Suspect]
     Active Substance: BEVACIZUMAB
     Dosage: UNK
     Route: 065
     Dates: start: 20160425, end: 20170216
  3. AVASTIN [Suspect]
     Active Substance: BEVACIZUMAB
     Route: 065
  4. CARBOPLATIN [Suspect]
     Active Substance: CARBOPLATIN
     Indication: Ovarian cancer
     Dosage: UNK
     Route: 065
     Dates: start: 201604
  5. CARBOPLATIN [Suspect]
     Active Substance: CARBOPLATIN
     Dosage: UNK
     Route: 065
     Dates: start: 201808
  6. CARBOPLATIN [Suspect]
     Active Substance: CARBOPLATIN
     Dosage: UNK
     Route: 065
     Dates: start: 20160425, end: 20170216
  7. CARBOPLATIN [Suspect]
     Active Substance: CARBOPLATIN
     Dosage: CYCLICAL
     Route: 065
     Dates: start: 20180803
  8. PACLITAXEL [Suspect]
     Active Substance: PACLITAXEL
     Indication: Ovarian cancer
     Route: 065
     Dates: start: 20160425, end: 20170216
  9. PACLITAXEL [Suspect]
     Active Substance: PACLITAXEL
     Dosage: 3 CYCLES
     Route: 065
     Dates: start: 20180803, end: 20181116
  10. PACLITAXEL [Suspect]
     Active Substance: PACLITAXEL
     Route: 065
     Dates: start: 20160425
  11. PACLITAXEL [Suspect]
     Active Substance: PACLITAXEL
     Route: 065
     Dates: start: 201604

REACTIONS (8)
  - Febrile neutropenia [Recovered/Resolved]
  - Fatigue [Unknown]
  - Ovarian cancer recurrent [Recovered/Resolved]
  - Polyneuropathy [Recovered/Resolved]
  - Nausea [Recovered/Resolved]
  - Hepatic mass [Unknown]
  - Abdominal pain upper [Unknown]
  - Dyspepsia [Unknown]

NARRATIVE: CASE EVENT DATE: 20170216
